FAERS Safety Report 19331869 (Version 4)
Quarter: 2021Q3

REPORT INFORMATION
  Report Type: Report from Study
  Country: US (occurrence: US)
  Receive Date: 20210529
  Receipt Date: 20210925
  Transmission Date: 20211014
  Serious: No
  Sender: FDA-Public Use
  Company Number: NVSC2021US118500

PATIENT
  Sex: Female

DRUGS (1)
  1. MAYZENT [Suspect]
     Active Substance: SIPONIMOD
     Indication: PRODUCT USED FOR UNKNOWN INDICATION
     Dosage: UNK
     Route: 065

REACTIONS (10)
  - Dyspnoea [Unknown]
  - Headache [Unknown]
  - Pain in extremity [Unknown]
  - Chest pain [Unknown]
  - Dizziness [Unknown]
  - Muscle disorder [Unknown]
  - Myalgia [Unknown]
  - Vision blurred [Unknown]
  - Gait disturbance [Unknown]
  - Confusional state [Unknown]
